FAERS Safety Report 7948710-3 (Version None)
Quarter: 2011Q4

REPORT INFORMATION
  Report Type: 
  Country: None (occurrence: None)
  Receive Date: 20111130
  Receipt Date: 20111130
  Transmission Date: 20120403
  Serious: Yes (Life-Threatening, Hospitalization, Other)
  Sender: FDA-Public Use
  Company Number: None

PATIENT
  Sex: Female
  Weight: 77.564 kg

DRUGS (1)
  1. PROTAMINE SULFATE [Suspect]
     Indication: HEPARIN NEUTRALISATION THERAPY
     Dosage: 50 MG
     Dates: start: 20110301, end: 20110301

REACTIONS (1)
  - ANAPHYLACTIC SHOCK [None]
